FAERS Safety Report 13698726 (Version 2)
Quarter: 2017Q3

REPORT INFORMATION
  Report Type: Spontaneous
  Country: US (occurrence: US)
  Receive Date: 20170628
  Receipt Date: 20170905
  Transmission Date: 20171127
  Serious: Yes (Other)
  Sender: FDA-Public Use
  Company Number: US-PFIZER INC-2017274314

PATIENT
  Age: 86 Year
  Sex: Male
  Weight: 73.16 kg

DRUGS (3)
  1. ATENOLOL. [Concomitant]
     Active Substance: ATENOLOL
     Dosage: UNK
  2. XALKORI [Suspect]
     Active Substance: CRIZOTINIB
     Indication: NON-SMALL CELL LUNG CANCER STAGE IV
     Dosage: 200 MG, 2X/DAY
     Route: 048
     Dates: start: 20170517
  3. PROPANOLOL HCL [Interacting]
     Active Substance: PROPRANOLOL HYDROCHLORIDE
     Dosage: UNK

REACTIONS (3)
  - Drug interaction [Unknown]
  - Heart rate decreased [Unknown]
  - Renal impairment [Unknown]
